FAERS Safety Report 14235390 (Version 2)
Quarter: 2017Q4

REPORT INFORMATION
  Report Type: Report from Study
  Country: MX (occurrence: MX)
  Receive Date: 20171129
  Receipt Date: 20171204
  Transmission Date: 20180321
  Serious: Yes (Death, Life-Threatening, Hospitalization, Other)
  Sender: FDA-Public Use
  Company Number: MX-PFIZER INC-2017509882

PATIENT
  Age: 38 Year
  Sex: Male
  Weight: 51 kg

DRUGS (5)
  1. CETUXIMAB. [Suspect]
     Active Substance: CETUXIMAB
     Indication: SQUAMOUS CELL CARCINOMA OF HEAD AND NECK
     Dosage: UNK
     Route: 042
     Dates: start: 20170810, end: 20171116
  2. TRAMADOL. [Concomitant]
     Active Substance: TRAMADOL
     Indication: TONGUE HAEMORRHAGE
  3. OMEPRAZOLE. [Concomitant]
     Active Substance: OMEPRAZOLE
     Indication: HAEMORRHAGE PROPHYLAXIS
     Dosage: 40 MG, DAILY
     Route: 042
     Dates: start: 20171122, end: 20171122
  4. PALBOCICLIB [Suspect]
     Active Substance: PALBOCICLIB
     Indication: SQUAMOUS CELL CARCINOMA OF HEAD AND NECK
     Dosage: UNK
     Route: 048
     Dates: start: 20170810, end: 20171121
  5. TRAMADOL. [Concomitant]
     Active Substance: TRAMADOL
     Indication: GLOSSODYNIA
     Dosage: 100 MG, 3X/DAY
     Route: 042
     Dates: start: 20171122, end: 20171122

REACTIONS (1)
  - Hypovolaemic shock [Not Recovered/Not Resolved]

NARRATIVE: CASE EVENT DATE: 20171123
